FAERS Safety Report 10445613 (Version 2)
Quarter: 2014Q3

REPORT INFORMATION
  Report Type: Spontaneous
  Country: US (occurrence: US)
  Receive Date: 20140908
  Receipt Date: 20140908
  Transmission Date: 20150326
  Serious: No
  Sender: FDA-Public Use
  Company Number: US-BRISTOL-MYERS SQUIBB COMPANY-20745634

PATIENT
  Age: 79 Year
  Sex: Female

DRUGS (9)
  1. FOLIC ACID. [Concomitant]
     Active Substance: FOLIC ACID
  2. NIFEDIPINE. [Concomitant]
     Active Substance: NIFEDIPINE
  3. ASA [Concomitant]
     Active Substance: ASPIRIN
  4. COLACE [Concomitant]
     Active Substance: DOCUSATE SODIUM
     Dosage: 1DF: 100 UNITS NOS
  5. ABILIFY [Suspect]
     Active Substance: ARIPIPRAZOLE
     Indication: DELUSION
     Dosage: DOSE REDUCED ON 13MAY14 TO 10MG/DAY
     Dates: start: 20110410
  6. B COMPLEX 100 [Concomitant]
  7. CALCIUM + VITAMIN D [Concomitant]
     Active Substance: CALCIUM\VITAMIN D
     Dosage: 1DF: 1/2 TABS
  8. VITAMIN D [Concomitant]
     Active Substance: CHOLECALCIFEROL
  9. ARICEPT [Concomitant]
     Active Substance: DONEPEZIL HYDROCHLORIDE

REACTIONS (2)
  - Tardive dyskinesia [Unknown]
  - Off label use [Unknown]

NARRATIVE: CASE EVENT DATE: 2012
